FAERS Safety Report 6156327-9 (Version None)
Quarter: 2009Q2

REPORT INFORMATION
  Report Type: 
  Country: None (occurrence: None)
  Receive Date: 20090415
  Receipt Date: 20090410
  Transmission Date: 20091009
  Serious: Yes (Other)
  Sender: FDA-Public Use
  Company Number: US-JNJCH-2009010111

PATIENT
  Age: 81 Year
  Sex: Male
  Weight: 68 kg

DRUGS (8)
  1. ZYRTEC-D 12 HOUR [Suspect]
     Indication: PRURITUS
     Dosage: TEXT:ONE TABLET AS DIRECTED
     Route: 048
     Dates: start: 20090407, end: 20090409
  2. ANTIHYPERTENSIVES [Concomitant]
     Indication: HYPERTENSION
     Dosage: TEXT:UNSPECIFIED
     Route: 065
  3. FLUOXETINE [Concomitant]
     Indication: DRUG USE FOR UNKNOWN INDICATION
     Dosage: TEXT:UNSPECIFIED
     Route: 065
  4. FLOMAX [Concomitant]
     Indication: MICTURITION DISORDER
     Dosage: TEXT:UNSPECIFIED
     Route: 065
  5. THYROID TAB [Concomitant]
     Indication: THYROID DISORDER
     Dosage: TEXT:UNSPECIFIED
     Route: 065
  6. LISINOPRIL [Concomitant]
     Indication: DRUG USE FOR UNKNOWN INDICATION
     Dosage: TEXT:UNSPECIFIED
     Route: 065
  7. STATINS [Concomitant]
     Indication: CARDIOVASCULAR DISORDER
     Dosage: TEXT:UNSPECIFIED
     Route: 065
  8. ALL OTHER THERAPEUTIC PRODUCTS [Concomitant]
     Indication: DRUG USE FOR UNKNOWN INDICATION
     Dosage: TEXT:UNSPECIFIED
     Route: 065

REACTIONS (2)
  - MICTURITION DISORDER [None]
  - WRONG DRUG ADMINISTERED [None]
